FAERS Safety Report 8766475 (Version 5)
Quarter: 2013Q1

REPORT INFORMATION
  Report Type: Report from Study
  Country: JP (occurrence: JP)
  Receive Date: 20120906
  Receipt Date: 20130222
  Transmission Date: 20140127
  Serious: Yes (Other)
  Sender: FDA-Public Use
  Company Number: JP-009507513-2012SP032682

PATIENT
  Age: 49 Year
  Sex: Male
  Weight: 63 kg

DRUGS (25)
  1. PEGINTERFERON ALFA-2B [Suspect]
     Indication: CHRONIC HEPATITIS C
     Dosage: 1.5 MICROGRAM PER KILOGRAM, QW
     Route: 058
     Dates: start: 20120216, end: 20120301
  2. PEGINTERFERON ALFA-2B [Suspect]
     Dosage: 1.1 MICROGRAM PER KILOGRAM, QW
     Route: 058
     Dates: start: 20120302, end: 20120315
  3. PEGINTERFERON ALFA-2B [Suspect]
     Dosage: 1.0 MICROGRAM PER KILOGRAM, QW
     Dates: start: 20120316, end: 20120329
  4. PEGINTERFERON ALFA-2B [Suspect]
     Dosage: 0.5 MICROGRAM PER KILOGRAM, QW
     Route: 058
     Dates: start: 20120330, end: 20120406
  5. PEGINTERFERON ALFA-2B [Suspect]
     Dosage: 0.6 MICROGRAM PER KILOGRAM, QW
     Route: 058
     Dates: start: 20120413, end: 20120413
  6. PEGINTERFERON ALFA-2B [Suspect]
     Dosage: 0.75 ?G/KG, QW
     Route: 058
     Dates: start: 20120420, end: 20120504
  7. PEGINTERFERON ALFA-2B [Suspect]
     Dosage: 0.45 ?G/KG, QW
     Route: 058
     Dates: start: 20120511, end: 20120511
  8. PEGINTERFERON ALFA-2B [Suspect]
     Dosage: 0.9 MICROGRAM PER KILOGRAM, QW
     Route: 058
     Dates: start: 20120518, end: 20120518
  9. PEGINTERFERON ALFA-2B [Suspect]
     Dosage: 0.75 MICROGRAM PER KILOGRAM, QW
     Route: 058
     Dates: start: 20120525, end: 20120525
  10. PEGINTERFERON ALFA-2B [Suspect]
     Dosage: 0.82 MICROGRAM PER KILOGRAM, QW
     Route: 058
     Dates: start: 20120601, end: 20120622
  11. PEGINTERFERON ALFA-2B [Suspect]
     Dosage: 0.9 MICROGRAM PER KILOGRAM, QW
     Route: 058
     Dates: start: 20120629, end: 20120706
  12. PEGINTERFERON ALFA-2B [Suspect]
     Dosage: 1.05 MICROGRAM PER KILOGRAM, QW
     Route: 058
     Dates: start: 20120713
  13. REBETOL [Suspect]
     Indication: CHRONIC HEPATITIS C
     Dosage: 800 MG, QD
     Route: 048
     Dates: start: 20120216, end: 20120315
  14. REBETOL [Suspect]
     Dosage: 400 MG, QD
     Route: 048
     Dates: start: 20120316, end: 20120322
  15. REBETOL [Suspect]
     Dosage: 200 MG, QD
     Route: 048
     Dates: start: 20120323, end: 20120330
  16. REBETOL [Suspect]
     Dosage: 200 MG, QD
     Route: 048
     Dates: start: 20120406, end: 20120511
  17. REBETOL [Suspect]
     Dosage: 200 MG AND 400 MG ON ALTERNATE DAYS
     Route: 048
     Dates: start: 20120512
  18. REBETOL [Suspect]
     Dosage: 400 MG, QD
     Route: 048
     Dates: start: 20120512, end: 20120809
  19. REBETOL [Suspect]
     Dosage: 500 MG, QD
     Route: 048
     Dates: start: 20120810
  20. TELAVIC [Suspect]
     Indication: CHRONIC HEPATITIS C
     Dosage: 2250 MG, QD
     Route: 048
     Dates: start: 20120216, end: 20120322
  21. TELAVIC [Suspect]
     Dosage: 1500 MG, QD
     Route: 048
     Dates: start: 20120323, end: 20120330
  22. TELAVIC [Suspect]
     Dosage: 1500 MG, QD
     Route: 048
     Dates: start: 20120406, end: 20120510
  23. CONFATANIN [Concomitant]
     Indication: PROPHYLAXIS
     Dosage: DAILY DOSE UNKNOWN
     Route: 048
     Dates: start: 20120216, end: 20120519
  24. REVOLADE [Concomitant]
     Indication: IDIOPATHIC THROMBOCYTOPENIC PURPURA
     Dosage: 12.5 MG, QD
     Route: 048
     Dates: end: 20120510
  25. REVOLADE [Concomitant]
     Dosage: 25 MG, QD
     Route: 048
     Dates: start: 20120511

REACTIONS (5)
  - Gout [Recovered/Resolved]
  - Gout [Recovering/Resolving]
  - Hyperuricaemia [Recovering/Resolving]
  - Platelet count decreased [Not Recovered/Not Resolved]
  - Haemoglobin decreased [Not Recovered/Not Resolved]
